FAERS Safety Report 25258860 (Version 1)
Quarter: 2025Q2

REPORT INFORMATION
  Report Type: Spontaneous
  Country: CN (occurrence: CN)
  Receive Date: 20250501
  Receipt Date: 20250501
  Transmission Date: 20250717
  Serious: Yes (Hospitalization)
  Sender: COHERUS
  Company Number: CN-SHANGHAI JUNSHI BIOSCIENCES CO., LTD.-CN2025013925

PATIENT

DRUGS (4)
  1. TORIPALIMAB [Suspect]
     Active Substance: TORIPALIMAB
     Indication: Hepatic cancer
     Dosage: 240 MG (D1), Q3W, PUMP INJECTION
     Route: 065
     Dates: start: 20250328, end: 20250328
  2. GEMCITABINE HYDROCHLORIDE [Suspect]
     Active Substance: GEMCITABINE HYDROCHLORIDE
     Indication: Hepatic cancer
     Dosage: 1 G (D1?D8, QD), EVERY 3 WEEKS AS A CYCLE
     Route: 041
     Dates: start: 20250328, end: 20250404
  3. GEMCITABINE HYDROCHLORIDE [Suspect]
     Active Substance: GEMCITABINE HYDROCHLORIDE
     Indication: Hepatic cancer
     Dosage: 600 MG (D1?D8, QD), EVERY 3 WEEKS AS A CYCLE
     Route: 041
     Dates: start: 20250328, end: 20250404
  4. CISPLATIN [Suspect]
     Active Substance: CISPLATIN
     Indication: Hepatic cancer
     Dosage: 60 MG (D1-D2, QD), EVERY 3 WEEKS AS A CYCLE
     Route: 041
     Dates: start: 20250328, end: 20250329

REACTIONS (1)
  - Myelosuppression [Unknown]

NARRATIVE: CASE EVENT DATE: 20250410
